FAERS Safety Report 8565522-0 (Version None)
Quarter: 2012Q3

REPORT INFORMATION
  Report Type: 
  Country: None (occurrence: None)
  Receive Date: 20120724
  Receipt Date: 20120711
  Transmission Date: 20120928
  Serious: Yes (Other)
  Sender: FDA-Public Use
  Company Number: AU-SEPTODONT-201200 695

PATIENT
  Age: 55 Year
  Sex: Female

DRUGS (1)
  1. SCANDONEST L [Suspect]
     Indication: LOCAL ANAESTHESIA
     Dosage: DENTAL
     Route: 004

REACTIONS (2)
  - NERVE INJURY [None]
  - AGEUSIA [None]
